FAERS Safety Report 12188152 (Version 2)
Quarter: 2016Q2

REPORT INFORMATION
  Report Type: Spontaneous
  Country: ES (occurrence: ES)
  Receive Date: 20160317
  Receipt Date: 20160406
  Transmission Date: 20160815
  Serious: Yes (Hospitalization, Other)
  Sender: FDA-Public Use
  Company Number: ES-GILEAD-2016-0203186

PATIENT
  Age: 56 Year
  Sex: Male

DRUGS (4)
  1. HARVONI [Suspect]
     Active Substance: LEDIPASVIR\SOFOSBUVIR
     Indication: HEPATITIS C
     Dosage: UNK
     Route: 065
     Dates: start: 20150917, end: 201510
  2. MYCOPHENOLATE MOFETIL. [Interacting]
     Active Substance: MYCOPHENOLATE MOFETIL
     Indication: PRODUCT USED FOR UNKNOWN INDICATION
     Dosage: 500 MG, BID
     Route: 065
     Dates: end: 201510
  3. TACROLIMUS. [Concomitant]
     Active Substance: TACROLIMUS
  4. RIBAVIRIN. [Concomitant]
     Active Substance: RIBAVIRIN
     Indication: HEPATITIS C
     Dosage: UNK
     Route: 065
     Dates: start: 20150917, end: 201510

REACTIONS (12)
  - Generalised tonic-clonic seizure [Unknown]
  - Malaise [Unknown]
  - Tremor [Unknown]
  - Diarrhoea [Unknown]
  - Renal impairment [Recovered/Resolved]
  - Metabolic acidosis [Recovered/Resolved]
  - Vomiting [Unknown]
  - Irritability [Unknown]
  - Anaemia [Unknown]
  - Unevaluable event [Unknown]
  - Drug interaction [Unknown]
  - Restlessness [Unknown]

NARRATIVE: CASE EVENT DATE: 2015
